FAERS Safety Report 4918360-1 (Version None)
Quarter: 2006Q1

REPORT INFORMATION
  Report Type: 
  Country: None (occurrence: None)
  Receive Date: 20060217
  Receipt Date: 20060217
  Transmission Date: 20060701
  Serious: Yes (Other)
  Sender: FDA-Public Use
  Company Number: None

PATIENT
  Sex: Male
  Weight: 76.2043 kg

DRUGS (1)
  1. RIBASPHERE [Suspect]
     Indication: HEPATITIS C
     Dosage: 3 CAPSULES EVERY MORNING/EVENI   PO
     Route: 048

REACTIONS (1)
  - DIABETES MELLITUS [None]
